FAERS Safety Report 5653154-3 (Version None)
Quarter: 2008Q1

REPORT INFORMATION
  Report Type: 
  Country: None (occurrence: None)
  Receive Date: 20080306
  Receipt Date: 20080226
  Transmission Date: 20080703
  Serious: Yes (Other)
  Sender: FDA-Public Use
  Company Number: US-SANOFI-SYNTHELABO-A03200800743

PATIENT
  Age: 67 Year
  Sex: Male

DRUGS (5)
  1. AMBIEN CR [Suspect]
     Indication: INSOMNIA
     Route: 048
  2. STATIN [Concomitant]
     Indication: DRUG USE FOR UNKNOWN INDICATION
     Dosage: UNK
     Route: 065
  3. PLAVIX [Concomitant]
     Indication: DRUG USE FOR UNKNOWN INDICATION
     Dosage: UNK
     Route: 065
  4. DIABETIC MEDICATION [Concomitant]
     Indication: DIABETES MELLITUS
     Dosage: UNK
     Route: 065
  5. BLOOD PRESSURE MEDICATION [Concomitant]
     Indication: BLOOD PRESSURE
     Dosage: UNK
     Route: 065

REACTIONS (8)
  - AMNESIA [None]
  - CONTUSION [None]
  - EXCORIATION [None]
  - ROAD TRAFFIC ACCIDENT [None]
  - SLEEP-RELATED EATING DISORDER [None]
  - SOMNAMBULISM [None]
  - SWELLING [None]
  - TRANCE [None]
